FAERS Safety Report 7293098-7 (Version None)
Quarter: 2011Q1

REPORT INFORMATION
  Report Type: 
  Country: None (occurrence: None)
  Receive Date: 20110215
  Receipt Date: 20110207
  Transmission Date: 20110831
  Serious: Yes (Life-Threatening)
  Sender: FDA-Public Use
  Company Number: LT-BAXTER-2011BH003044

PATIENT
  Age: 2 Year
  Sex: Female
  Weight: 14 kg

DRUGS (4)
  1. FILGRASTIM [Concomitant]
     Indication: NEUTROPENIA
     Dates: start: 20110131
  2. METRONIDAZOLE [Concomitant]
     Indication: INFECTION
     Dates: start: 20110131
  3. MERONEM [Concomitant]
     Indication: SEPSIS
     Route: 042
     Dates: start: 20110202
  4. GAMMAGARD LIQUID [Suspect]
     Indication: HYPOGAMMAGLOBULINAEMIA
     Route: 065
     Dates: start: 20110203, end: 20110203

REACTIONS (1)
  - ANAPHYLACTIC SHOCK [None]
